FAERS Safety Report 10946657 (Version 1)
Quarter: 2015Q1

REPORT INFORMATION
  Report Type: Spontaneous
  Country: US (occurrence: US)
  Receive Date: 20150323
  Receipt Date: 20150323
  Transmission Date: 20150721
  Serious: Yes (Hospitalization, Other)
  Sender: FDA-Public Use
  Company Number: US-ELI_LILLY_AND_COMPANY-US201503004762

PATIENT
  Sex: Female

DRUGS (6)
  1. HUMALOG [Suspect]
     Active Substance: INSULIN LISPRO
     Indication: TYPE 2 DIABETES MELLITUS
     Dosage: UNK
     Route: 065
     Dates: end: 20150213
  2. HUMALOG [Suspect]
     Active Substance: INSULIN LISPRO
     Indication: TYPE 2 DIABETES MELLITUS
     Dosage: 15 U, PRN
     Route: 065
     Dates: start: 20150213
  3. LANTUS [Concomitant]
     Active Substance: INSULIN GLARGINE
     Indication: TYPE 2 DIABETES MELLITUS
  4. GLIPIZIDE. [Concomitant]
     Active Substance: GLIPIZIDE
  5. LEVEMIR [Concomitant]
     Active Substance: INSULIN DETEMIR
     Indication: TYPE 2 DIABETES MELLITUS
     Dosage: 50 U, EACH EVENING
  6. METFORMIN [Concomitant]
     Active Substance: METFORMIN HYDROCHLORIDE
     Indication: TYPE 2 DIABETES MELLITUS

REACTIONS (10)
  - Muscle spasms [Unknown]
  - Glycosylated haemoglobin increased [Unknown]
  - Fatigue [Unknown]
  - Staphylococcal infection [Recovered/Resolved]
  - Abdominal distension [Unknown]
  - Blood glucose fluctuation [Unknown]
  - Irritable bowel syndrome [Unknown]
  - Underdose [Unknown]
  - Increased insulin requirement [Unknown]
  - Feeling abnormal [Unknown]
